FAERS Safety Report 9345300 (Version 3)
Quarter: 2014Q1

REPORT INFORMATION
  Report Type: Spontaneous
  Country: US (occurrence: US)
  Receive Date: 20130613
  Receipt Date: 20140305
  Transmission Date: 20141002
  Serious: Yes (Hospitalization)
  Sender: FDA-Public Use
  Company Number: US-B.I. PHARMACEUTICALS,INC./RIDGEFIELD-2013-BI-16279BP

PATIENT
  Age: 75 Year
  Sex: Female
  Weight: 99.79 kg

DRUGS (17)
  1. PRADAXA [Suspect]
     Indication: CEREBROVASCULAR ACCIDENT PROPHYLAXIS
     Dosage: 300 MG
     Route: 048
     Dates: start: 201108, end: 20120131
  2. PRADAXA [Suspect]
     Indication: THROMBOSIS PROPHYLAXIS
  3. ASPIRIN [Suspect]
     Indication: PRODUCT USED FOR UNKNOWN INDICATION
     Dosage: 81 MG
     Route: 048
     Dates: end: 20120131
  4. MELOXICAM [Suspect]
     Indication: PRODUCT USED FOR UNKNOWN INDICATION
     Dosage: 7.5 MG
     Route: 048
  5. MULTAQ [Concomitant]
     Dosage: 800 MG
     Route: 048
  6. DIOVAN [Concomitant]
     Dosage: 320 MG
     Route: 048
  7. CRESTOR [Concomitant]
     Route: 065
  8. TRAZADONE [Concomitant]
     Route: 065
  9. LASIX [Concomitant]
     Dosage: 40 MG
     Route: 048
  10. ZYRTEC [Concomitant]
     Route: 065
  11. TRAMADOL [Concomitant]
     Dosage: 300 MG
     Route: 065
  12. MULTIVITAMIN WITH MINERALS [Concomitant]
     Route: 048
  13. ERYTHROMYCIN [Concomitant]
     Route: 065
  14. CO Q 10 [Concomitant]
     Route: 048
  15. FLEXERIL [Concomitant]
     Indication: MUSCLE SPASMS
     Route: 048
  16. MEDROL DOSE PACK [Concomitant]
     Route: 048
  17. PERCOCET [Concomitant]
     Route: 048

REACTIONS (3)
  - Upper gastrointestinal haemorrhage [Unknown]
  - Renal impairment [Unknown]
  - Pruritus [Unknown]
